FAERS Safety Report 8340309-2 (Version None)
Quarter: 2012Q2

REPORT INFORMATION
  Report Type: 
  Country: None (occurrence: None)
  Receive Date: 20120507
  Receipt Date: 20120507
  Transmission Date: 20120825
  Serious: Yes (Hospitalization)
  Sender: FDA-Public Use
  Company Number: None

PATIENT
  Age: 86 Year
  Sex: Female
  Weight: 88.45 kg

DRUGS (4)
  1. CELEBREX [Concomitant]
     Route: 048
  2. XARELTO [Suspect]
     Indication: ATRIAL FIBRILLATION
     Dosage: |DOSAGETEXT: 15MG||STRENGTH: 15MG||FREQ: DAILY||ROUTE: ORAL|
     Route: 048
  3. PLAVIX [Suspect]
     Indication: CORONARY ARTERY DISEASE
     Dosage: |DOSAGETEXT: 75MG||STRENGTH: 75MG||FREQ: DAILY||ROUTE: ORAL|
     Route: 048
  4. ASPIRIN [Concomitant]
     Route: 048

REACTIONS (8)
  - ASTHENIA [None]
  - GASTROINTESTINAL HAEMORRHAGE [None]
  - GASTRIC ULCER [None]
  - GASTRITIS EROSIVE [None]
  - GASTRITIS [None]
  - ANAEMIA [None]
  - ABDOMINAL PAIN [None]
  - NAUSEA [None]
